FAERS Safety Report 9076379 (Version 1)
Quarter: 2013Q1

REPORT INFORMATION
  Report Type: Spontaneous
  Country: US (occurrence: US)
  Receive Date: 20130129
  Receipt Date: 20130129
  Transmission Date: 20140127
  Serious: No
  Sender: FDA-Public Use
  Company Number: US-ABBOTT-12P-163-0925888-00

PATIENT
  Sex: Female
  Weight: 63.56 kg

DRUGS (7)
  1. HUMIRA 40 MG/0.8 ML PEN [Suspect]
     Indication: ANKYLOSING SPONDYLITIS
     Route: 058
     Dates: start: 20100811, end: 201112
  2. GABAPENTIN [Concomitant]
     Indication: POST HERPETIC NEURALGIA
     Dates: start: 201112
  3. 6-MP [Concomitant]
     Indication: COLITIS ULCERATIVE
     Dates: start: 1995
  4. VALCYCLOVIR [Concomitant]
     Indication: HERPES ZOSTER
     Dates: start: 201112
  5. ASACOL HD [Concomitant]
     Indication: COLITIS ULCERATIVE
     Dates: start: 1995
  6. CELEBREX [Concomitant]
     Indication: ANKYLOSING SPONDYLITIS
     Dates: start: 20120405
  7. LORATADINE [Concomitant]
     Indication: SEASONAL ALLERGY
     Dates: start: 2012

REACTIONS (3)
  - Aphthous stomatitis [Recovering/Resolving]
  - Neoplasm skin [Unknown]
  - Basal cell carcinoma [Unknown]
